FAERS Safety Report 7229428-1 (Version None)
Quarter: 2011Q1

REPORT INFORMATION
  Report Type: 
  Country: None (occurrence: None)
  Receive Date: 20110117
  Receipt Date: 20110111
  Transmission Date: 20110831
  Serious: Yes (Hospitalization)
  Sender: FDA-Public Use
  Company Number: B0688284A

PATIENT
  Sex: Female
  Weight: 78 kg

DRUGS (12)
  1. ALDACTONE [Concomitant]
     Route: 048
  2. LOSARTAN POTASSIUM AND HYDROCHLOROTHIAZIDE [Concomitant]
     Indication: HYPERTENSION
     Route: 048
  3. TYKERB [Suspect]
     Indication: BREAST CANCER
     Dosage: 1750MG PER DAY
     Route: 048
     Dates: start: 20100304, end: 20100317
  4. AMLODIPINE [Concomitant]
     Indication: HYPERTENSION
     Route: 048
  5. GASTER D [Concomitant]
     Indication: GASTRITIS
     Route: 048
  6. FUROSEMIDE [Concomitant]
     Route: 048
  7. MAGMITT [Concomitant]
     Indication: CONSTIPATION
     Route: 048
  8. ZOMETA [Concomitant]
     Route: 042
     Dates: start: 20070830, end: 20100317
  9. XELODA [Concomitant]
     Dosage: 2400MG PER DAY
     Route: 048
     Dates: start: 20100304, end: 20100317
  10. OLMETEC [Concomitant]
     Indication: HYPERTENSION
     Route: 048
  11. MOBIC [Concomitant]
     Indication: CANCER PAIN
     Route: 048
  12. HUMALOG [Concomitant]
     Indication: DIABETES MELLITUS
     Route: 058

REACTIONS (1)
  - DIARRHOEA [None]
